FAERS Safety Report 6759988-6 (Version None)
Quarter: 2010Q2

REPORT INFORMATION
  Report Type: 
  Country: None (occurrence: None)
  Receive Date: 20100604
  Receipt Date: 20100520
  Transmission Date: 20101027
  Serious: Yes (Hospitalization)
  Sender: FDA-Public Use
  Company Number: 2010002041

PATIENT
  Age: 63 Year
  Sex: Male

DRUGS (4)
  1. ERLOTINIB/PLACEBO (ERLOTINIB) (TABLET) (ERLOTINIB) [Suspect]
     Indication: NON-SMALL CELL LUNG CANCER
     Dosage: ORAL
     Route: 048
     Dates: start: 20100401
  2. GEMCITABINE [Suspect]
     Indication: NON-SMALL CELL LUNG CANCER
     Dosage: (1950 MG, QD), INTRAVENOUS
     Route: 042
     Dates: start: 20100318
  3. CARBOPLATIN [Suspect]
     Indication: NON-SMALL CELL LUNG CANCER
     Dosage: (380 MG, QD), INTRAVENOUS
     Route: 042
     Dates: start: 20100318
  4. APPEBON [Concomitant]

REACTIONS (3)
  - ANAEMIA [None]
  - ASTHENIA [None]
  - THROMBOCYTOPENIA [None]
